FAERS Safety Report 5631907-5 (Version None)
Quarter: 2008Q1

REPORT INFORMATION
  Report Type: 
  Country: None (occurrence: None)
  Receive Date: 20080220
  Receipt Date: 20080208
  Transmission Date: 20080703
  Serious: Yes (Life-Threatening, Hospitalization, Other)
  Sender: FDA-Public Use
  Company Number: US-AMGEN-STX247539

PATIENT
  Sex: Male
  Weight: 93.5 kg

DRUGS (5)
  1. ENBREL [Suspect]
     Indication: JUVENILE ARTHRITIS
     Route: 058
     Dates: start: 20040101, end: 20070909
  2. REMICADE [Concomitant]
     Dates: start: 20060201, end: 20060201
  3. METHOTREXATE [Concomitant]
  4. PREDNISONE TAB [Concomitant]
  5. HUMIRA [Concomitant]
     Dates: start: 20051001, end: 20060101

REACTIONS (17)
  - ANAEMIA HAEMOLYTIC AUTOIMMUNE [None]
  - ANAPHYLACTIC REACTION [None]
  - ARTHRALGIA [None]
  - BLOOD BILIRUBIN INCREASED [None]
  - BLOOD LACTATE DEHYDROGENASE INCREASED [None]
  - DECREASED APPETITE [None]
  - DRUG INEFFECTIVE [None]
  - HEPATOMEGALY [None]
  - IRON DEFICIENCY [None]
  - LEUKOPENIA [None]
  - LYMPHOPENIA [None]
  - MARROW HYPERPLASIA [None]
  - NIGHT SWEATS [None]
  - SINUSITIS [None]
  - SPLENOMEGALY [None]
  - UPPER RESPIRATORY TRACT INFECTION [None]
  - WEIGHT DECREASED [None]
